FAERS Safety Report 8267551-3 (Version None)
Quarter: 2012Q2

REPORT INFORMATION
  Report Type: 
  Country: None (occurrence: None)
  Receive Date: 20120405
  Receipt Date: 20120405
  Transmission Date: 20120825
  Serious: Yes (Hospitalization)
  Sender: FDA-Public Use
  Company Number: None

PATIENT
  Age: 72 Year
  Sex: Male
  Weight: 73.5 kg

DRUGS (2)
  1. DICLOFENAC SODIUM [Suspect]
     Indication: GOUT
     Dosage: 75 MG BID PO
     Route: 048
     Dates: start: 20120215, end: 20120306
  2. PREDNISONE [Suspect]
     Indication: GOUT
     Dosage: 20 MG EVERY DAY PO
     Route: 048
     Dates: start: 20120215, end: 20120306

REACTIONS (5)
  - FATIGUE [None]
  - DIZZINESS [None]
  - LARGE INTESTINAL ULCER [None]
  - NAUSEA [None]
  - HAEMATOCHEZIA [None]
